FAERS Safety Report 8408678 (Version 2)
Quarter: 2013Q4

REPORT INFORMATION
  Report Type: Spontaneous
  Country: US (occurrence: US)
  Receive Date: 20120216
  Receipt Date: 20131216
  Transmission Date: 20140711
  Serious: Yes (Hospitalization, Other)
  Sender: FDA-Public Use
  Company Number: US-BAYER-2012-014736

PATIENT
  Age: 20 Year
  Sex: Female

DRUGS (1)
  1. YAZ [Suspect]
     Dosage: UNK
     Dates: start: 2009, end: 201001

REACTIONS (7)
  - Pancreatitis [None]
  - Gallbladder disorder [None]
  - Pain [None]
  - Anxiety [None]
  - Gastrointestinal disorder [None]
  - Post cholecystectomy syndrome [None]
  - Psychological trauma [None]
